FAERS Safety Report 7557446-2 (Version None)
Quarter: 2011Q2

REPORT INFORMATION
  Report Type: 
  Country: None (occurrence: None)
  Receive Date: 20110620
  Receipt Date: 20110607
  Transmission Date: 20111010
  Serious: Yes (Hospitalization)
  Sender: FDA-Public Use
  Company Number: US-ROCHE-783362

PATIENT

DRUGS (2)
  1. SORAFENIB [Suspect]
     Dosage: ON DAYS 1-5,8-12, 15-19 AND 22-26, DATE OF LAST DOSE: 17 NOVEMBER 2010.
     Route: 048
     Dates: start: 20101019
  2. BEVACIZUMAB [Suspect]
     Dosage: OVER 30-90 MINS ON DAY 1 AND 15. DATE OF LAST DOSE:17 NOVEMBER 2010.
     Route: 042
     Dates: start: 20101019

REACTIONS (6)
  - DIARRHOEA [None]
  - SMALL INTESTINAL HAEMORRHAGE [None]
  - NAUSEA [None]
  - VOMITING [None]
  - REFLUX GASTRITIS [None]
  - DEHYDRATION [None]
